FAERS Safety Report 19986008 (Version 6)
Quarter: 2022Q3

REPORT INFORMATION
  Report Type: Spontaneous
  Country: US (occurrence: US)
  Receive Date: 20211022
  Receipt Date: 20220801
  Transmission Date: 20221026
  Serious: No
  Sender: FDA-Public Use
  Company Number: US-TAKEDA-2021TUS063842

PATIENT
  Age: 59 Year
  Sex: Female
  Weight: 46.259 kg

DRUGS (5)
  1. BRIGATINIB [Suspect]
     Active Substance: BRIGATINIB
     Indication: Lung neoplasm malignant
     Dosage: 120 MILLIGRAM, QD
     Route: 048
     Dates: start: 20211007
  2. LOSARTAN [Suspect]
     Active Substance: LOSARTAN
     Indication: Blood pressure increased
     Dosage: UNK
     Route: 065
  3. HYDROCORTISONE [Concomitant]
     Active Substance: HYDROCORTISONE
     Dosage: UNK
     Route: 065
  4. VITAMIN D3 [Concomitant]
     Active Substance: CHOLECALCIFEROL
     Dosage: UNK
     Route: 065
  5. CALCIUM [Concomitant]
     Active Substance: CALCIUM
     Dosage: UNK
     Route: 065

REACTIONS (9)
  - Oral pain [Unknown]
  - Tongue disorder [Unknown]
  - Stomatitis [Unknown]
  - Blood pressure increased [Unknown]
  - Nausea [Unknown]
  - Musculoskeletal chest pain [Unknown]
  - Back pain [Unknown]
  - Muscle spasms [Unknown]
  - Product administration error [Unknown]

NARRATIVE: CASE EVENT DATE: 20211012
